FAERS Safety Report 5607567-6 (Version None)
Quarter: 2008Q1

REPORT INFORMATION
  Report Type: 
  Country: None (occurrence: None)
  Receive Date: 20080130
  Receipt Date: 20080122
  Transmission Date: 20080703
  Serious: Yes (Other)
  Sender: FDA-Public Use
  Company Number: PHHY2008NZ00884

PATIENT
  Sex: Male

DRUGS (3)
  1. EPILIM [Concomitant]
  2. LARGACTIL [Concomitant]
  3. CLOZARIL [Suspect]
     Indication: SCHIZOPHRENIA
     Dosage: 900 MG, NOCTE
     Route: 048
     Dates: start: 20001005

REACTIONS (3)
  - ANXIETY [None]
  - ENURESIS [None]
  - SCHIZOPHRENIA [None]
